FAERS Safety Report 7589478-2 (Version None)
Quarter: 2011Q2

REPORT INFORMATION
  Report Type: 
  Country: None (occurrence: None)
  Receive Date: 20110621
  Receipt Date: 20110609
  Transmission Date: 20111010
  Serious: Yes (Other)
  Sender: FDA-Public Use
  Company Number: AUR-APL-2011-02893

PATIENT
  Age: 89 Year
  Sex: Female

DRUGS (12)
  1. ASPIRIN [Concomitant]
  2. MACROGOL (MACROGOL) [Suspect]
     Indication: PRODUCT USED FOR UNKNOWN INDICATION
  3. LACTULOSE [Concomitant]
  4. AMLODIPINE [Concomitant]
  5. NEFOPAM (NEFOPAM) [Concomitant]
  6. LISINOPRIL [Suspect]
     Indication: HYPERTENSION
     Dosage: 40 MG (40 MG, 1 IN 1 D), ORAL
     Route: 048
     Dates: start: 20100101, end: 20110518
  7. ASPRIRIN (ACETYLSALICYLIC ACID) [Concomitant]
  8. OMEPRAZOLE [Concomitant]
  9. SIMVASTATIN [Concomitant]
  10. AMITRIPTYLINE HCL [Concomitant]
  11. ACETAMINOPHEN [Concomitant]
  12. QUININE SULPHATE (QUININE SULPHATE) [Concomitant]

REACTIONS (3)
  - C-REACTIVE PROTEIN INCREASED [None]
  - SWOLLEN TONGUE [None]
  - SALIVARY GLAND ENLARGEMENT [None]
